FAERS Safety Report 19287470 (Version 1)
Quarter: 2021Q2

REPORT INFORMATION
  Report Type: Spontaneous
  Country: DE (occurrence: DE)
  Receive Date: 20210521
  Receipt Date: 20210521
  Transmission Date: 20210717
  Serious: Yes (Hospitalization, Other)
  Sender: FDA-Public Use
  Company Number: DE-GILEAD-2021-0530723

PATIENT
  Sex: Male
  Weight: 80 kg

DRUGS (3)
  1. VIREAD [Suspect]
     Active Substance: TENOFOVIR DISOPROXIL FUMARATE
     Indication: HEPATITIS B
     Dosage: 245 MG
     Route: 048
     Dates: start: 2019
  2. HEPCLUDEX [Suspect]
     Active Substance: BULEVIRTIDE
     Dosage: 2 UNK
     Route: 058
     Dates: start: 202104
  3. HEPCLUDEX [Suspect]
     Active Substance: BULEVIRTIDE
     Indication: HEPATITIS D
     Dosage: 2 MG
     Route: 058
     Dates: start: 20201209, end: 20210226

REACTIONS (3)
  - Epilepsy [Recovered/Resolved]
  - Acute psychosis [Recovered/Resolved]
  - Head discomfort [Recovered/Resolved]

NARRATIVE: CASE EVENT DATE: 202101
